FAERS Safety Report 15434132 (Version 1)
Quarter: 2018Q3

REPORT INFORMATION
  Report Type: Spontaneous
  Country: AU (occurrence: AU)
  Receive Date: 20180927
  Receipt Date: 20180927
  Transmission Date: 20181010
  Serious: Yes (Other)
  Sender: FDA-Public Use
  Company Number: AU-MYLANLABS-2018M1070074

PATIENT
  Age: 67 Year
  Sex: Male

DRUGS (1)
  1. ASCORBIC ACID. [Suspect]
     Active Substance: ASCORBIC ACID
     Indication: OESOPHAGEAL CANCER METASTATIC
     Route: 042

REACTIONS (2)
  - Crystal nephropathy [Unknown]
  - Renal failure [Not Recovered/Not Resolved]
